FAERS Safety Report 10516834 (Version 1)
Quarter: 2014Q4

REPORT INFORMATION
  Report Type: Spontaneous
  Country: US (occurrence: US)
  Receive Date: 20141014
  Receipt Date: 20141014
  Transmission Date: 20150528
  Serious: Yes (Other)
  Sender: FDA-Public Use
  Company Number: US-BAYER-2014-151070

PATIENT
  Age: 33 Year
  Sex: Female

DRUGS (1)
  1. MIRENA [Suspect]
     Active Substance: LEVONORGESTREL
     Indication: CONTRACEPTION
     Dosage: 20 MCG/24HR, CONT
     Route: 015
     Dates: start: 20101013, end: 20121018

REACTIONS (5)
  - Injury [None]
  - Pelvic pain [None]
  - Emotional distress [None]
  - Uterine perforation [None]
  - Abdominal pain [None]

NARRATIVE: CASE EVENT DATE: 20121018
